FAERS Safety Report 13568285 (Version 19)
Quarter: 2022Q4

REPORT INFORMATION
  Report Type: Report from Study
  Country: AU (occurrence: AU)
  Receive Date: 20170522
  Receipt Date: 20221220
  Transmission Date: 20230112
  Serious: Yes (Hospitalization)
  Sender: FDA-Public Use
  Company Number: AU-SA-2015SA169162

PATIENT
  Age: 39 Year
  Sex: Female

DRUGS (11)
  1. ALEMTUZUMAB [Suspect]
     Active Substance: ALEMTUZUMAB
     Indication: Multiple sclerosis relapse
     Dosage: 9 MG, QD
     Route: 041
     Dates: start: 20150803, end: 20150803
  2. ALEMTUZUMAB [Suspect]
     Active Substance: ALEMTUZUMAB
     Dosage: 3 MG, QD
     Route: 041
     Dates: start: 20150803, end: 20150803
  3. ALEMTUZUMAB [Suspect]
     Active Substance: ALEMTUZUMAB
     Dosage: 12 MG, QD
     Route: 041
     Dates: start: 20150804, end: 20150807
  4. ALEMTUZUMAB [Suspect]
     Active Substance: ALEMTUZUMAB
     Dosage: 12 MG, QD
     Route: 041
     Dates: start: 20160803, end: 20160805
  5. RANITIDINE [Concomitant]
     Active Substance: RANITIDINE
     Indication: Prophylaxis
     Dosage: 300 MG,QD
     Route: 048
     Dates: start: 20150802, end: 20150815
  6. VALACYCLOVIR HYDROCHLORIDE [Concomitant]
     Active Substance: VALACYCLOVIR HYDROCHLORIDE
     Indication: Prophylaxis
     Dosage: 500 MG,QD
     Route: 048
     Dates: start: 20150802, end: 20150815
  7. TEMAZEPAM [Concomitant]
     Active Substance: TEMAZEPAM
     Indication: Drug therapy
     Dosage: 10 MG,QD
     Route: 048
     Dates: start: 20150803, end: 20150815
  8. TEMAZEPAM [Concomitant]
     Active Substance: TEMAZEPAM
     Indication: Prophylaxis
  9. METHYLPREDNISOLONE [Concomitant]
     Active Substance: METHYLPREDNISOLONE
     Indication: Prophylaxis
     Dosage: 1 G,QD
     Route: 042
     Dates: start: 20150803, end: 20150805
  10. FLUTICASONE PROPIONATE [Concomitant]
     Active Substance: FLUTICASONE PROPIONATE
     Indication: Asthma
     Dosage: 4 DF,QD
     Route: 055
     Dates: start: 1984
  11. VENTOLIN [Concomitant]
     Active Substance: ALBUTEROL SULFATE
     Indication: Asthma
     Dosage: 8 DF,QD
     Route: 055
     Dates: start: 1984

REACTIONS (44)
  - Herpes zoster [Recovered/Resolved with Sequelae]
  - Back pain [Recovered/Resolved with Sequelae]
  - Eosinophil count increased [Recovered/Resolved]
  - Vision blurred [Recovered/Resolved]
  - Heavy menstrual bleeding [Recovered/Resolved]
  - Back pain [Recovered/Resolved]
  - Dysmenorrhoea [Recovered/Resolved]
  - Peripheral coldness [Recovered/Resolved]
  - Burning sensation [Recovered/Resolved]
  - Burning sensation [Recovered/Resolved]
  - Glaucoma [Recovered/Resolved]
  - Hypoaesthesia oral [Recovered/Resolved]
  - Hypoaesthesia [Recovered/Resolved]
  - Folliculitis [Not Recovered/Not Resolved]
  - Rash follicular [Recovered/Resolved]
  - Metapneumovirus infection [Recovered/Resolved]
  - Palpitations [Recovered/Resolved]
  - Headache [Recovered/Resolved]
  - Dizziness [Recovered/Resolved]
  - Hypertension [Recovered/Resolved]
  - Pruritus [Recovered/Resolved]
  - Lower respiratory tract infection [Recovered/Resolved]
  - Dyspnoea [Recovered/Resolved]
  - Pruritus [Not Recovered/Not Resolved]
  - Flushing [Recovered/Resolved]
  - Folliculitis [Recovered/Resolved]
  - Upper respiratory tract infection [Recovered/Resolved]
  - Urinary tract infection [Recovered/Resolved]
  - Viral infection [Recovered/Resolved]
  - Tonsillitis [Recovered/Resolved]
  - Oral herpes [Recovered/Resolved]
  - Tonsillitis [Recovered/Resolved]
  - Candida infection [Recovered/Resolved]
  - Ear pain [Recovered/Resolved]
  - Panic attack [Recovered/Resolved]
  - Back injury [Recovered/Resolved]
  - Constipation [Recovered/Resolved]
  - Aphasia [Recovered/Resolved]
  - Post herpetic neuralgia [Recovered/Resolved]
  - Arthralgia [Recovered/Resolved]
  - Asthma [Not Recovered/Not Resolved]
  - Urinary incontinence [Not Recovered/Not Resolved]
  - Muscular weakness [Recovered/Resolved]
  - Headache [Recovered/Resolved]

NARRATIVE: CASE EVENT DATE: 20150803
